FAERS Safety Report 17555300 (Version 2)
Quarter: 2020Q2

REPORT INFORMATION
  Report Type: Report from Study
  Country: None (occurrence: US)
  Receive Date: 20200318
  Receipt Date: 20200430
  Transmission Date: 20200713
  Serious: Yes (Other)
  Sender: FDA-Public Use
  Company Number: US-ABBVIE-20K-163-3324906-00

PATIENT
  Sex: Male

DRUGS (1)
  1. VENCLEXTA [Suspect]
     Active Substance: VENETOCLAX
     Indication: CHRONIC LYMPHOCYTIC LEUKAEMIA
     Route: 048
     Dates: start: 20181213

REACTIONS (6)
  - Cataract [Unknown]
  - Cough [Unknown]
  - Headache [Unknown]
  - Sputum discoloured [Unknown]
  - Red blood cell count decreased [Unknown]
  - White blood cell count decreased [Unknown]
